FAERS Safety Report 7791570-4 (Version None)
Quarter: 2011Q4

REPORT INFORMATION
  Report Type: 
  Country: None (occurrence: None)
  Receive Date: 20111003
  Receipt Date: 20110926
  Transmission Date: 20120403
  Serious: Yes (Life-Threatening, Hospitalization)
  Sender: FDA-Public Use
  Company Number: US-AMGEN-USASP2011049623

PATIENT
  Age: 44 Year
  Sex: Female
  Weight: 119.5 kg

DRUGS (15)
  1. BEVACIZUMAB [Suspect]
     Indication: BREAST CANCER
     Dosage: 10 MG/KG, UNK
     Route: 042
     Dates: start: 20110324
  2. CYCLOPHOSPHAMIDE [Suspect]
     Indication: BREAST CANCER
     Dosage: 600 MG/M2, UNK
     Route: 042
     Dates: start: 20110324
  3. PEPCID [Concomitant]
  4. PEGFILGRASTIM [Suspect]
     Indication: PRODUCT USED FOR UNKNOWN INDICATION
     Dosage: 6 MG, UNK
     Dates: end: 20110825
  5. DIFLUCAN [Concomitant]
  6. MUCINEX [Concomitant]
  7. TESSALON [Concomitant]
  8. PROCHLORPERAZINE [Concomitant]
  9. AMBIEN [Concomitant]
  10. CEFEPIME [Concomitant]
  11. TOPROL-XL [Concomitant]
  12. TYLENOL (CAPLET) [Concomitant]
  13. BACITRACIN [Concomitant]
  14. DOXORUBICIN HCL [Suspect]
     Indication: BREAST CANCER
     Dosage: 10 MG/KG, UNK
     Route: 042
     Dates: start: 20110324
  15. PACLITAXEL [Suspect]
     Indication: BREAST CANCER
     Dosage: 80 MG/M2, UNK
     Route: 042
     Dates: start: 20110324

REACTIONS (4)
  - ANAEMIA [None]
  - FEBRILE NEUTROPENIA [None]
  - WHITE BLOOD CELL COUNT DECREASED [None]
  - PLATELET COUNT DECREASED [None]
